FAERS Safety Report 4456861-3 (Version None)
Quarter: 2004Q3

REPORT INFORMATION
  Report Type: 
  Country: None (occurrence: None)
  Receive Date: 20040923
  Receipt Date: 20040903
  Transmission Date: 20050211
  Serious: Yes (Disabling)
  Sender: FDA-Public Use
  Company Number: PHHO2004JP12321

PATIENT
  Age: 22 Year
  Sex: Male
  Weight: 61 kg

DRUGS (2)
  1. CYCLOSPORINE [Suspect]
     Indication: DERMATITIS ATOPIC
     Dosage: 180 MG, BID
     Route: 048
     Dates: start: 20040611, end: 20040902
  2. CYCLOSPORINE [Suspect]
     Dosage: NO TREATMENT
     Dates: start: 20040903

REACTIONS (5)
  - EYE HAEMORRHAGE [None]
  - MACULAR OEDEMA [None]
  - RETINAL VEIN OCCLUSION [None]
  - VISION BLURRED [None]
  - VISUAL ACUITY REDUCED [None]
